FAERS Safety Report 12723638 (Version 1)
Quarter: 2016Q3

REPORT INFORMATION
  Report Type: Spontaneous
  Country: US (occurrence: US)
  Receive Date: 20160908
  Receipt Date: 20160908
  Transmission Date: 20161109
  Serious: Yes (Other)
  Sender: FDA-Public Use
  Company Number: US-EMD SERONO-8105099

PATIENT
  Age: 51 Year
  Sex: Female

DRUGS (1)
  1. REBIF [Suspect]
     Active Substance: INTERFERON BETA-1A
     Indication: PRODUCT USED FOR UNKNOWN INDICATION

REACTIONS (8)
  - Gait disturbance [Unknown]
  - Headache [Unknown]
  - Fatigue [Unknown]
  - Balance disorder [Unknown]
  - Nausea [Unknown]
  - Stenosis [Unknown]
  - Dizziness [Unknown]
  - Pyrexia [Unknown]
